FAERS Safety Report 7112069-4 (Version None)
Quarter: 2010Q4

REPORT INFORMATION
  Report Type: 
  Country: None (occurrence: None)
  Receive Date: 20101119
  Receipt Date: 20101111
  Transmission Date: 20110411
  Serious: Yes (Other)
  Sender: FDA-Public Use
  Company Number: BR-US-EMD SERONO, INC.-7027643

PATIENT
  Sex: Female

DRUGS (4)
  1. REBIF [Suspect]
     Indication: RELAPSING-REMITTING MULTIPLE SCLEROSIS
     Dates: start: 20080331
  2. MODURETIC 5-50 [Concomitant]
  3. ALMEIDA PRADO 46 [Concomitant]
     Indication: CONSTIPATION
  4. COMBIRON FOLICO [Concomitant]

REACTIONS (1)
  - LABYRINTHITIS [None]
